FAERS Safety Report 6495613-X (Version None)
Quarter: 2009Q4

REPORT INFORMATION
  Report Type: 
  Country: None (occurrence: None)
  Receive Date: 20091214
  Receipt Date: 20090916
  Transmission Date: 20100525
  Serious: No
  Sender: FDA-Public Use
  Company Number: US-BRISTOL-MYERS SQUIBB COMPANY-14713655

PATIENT
  Age: 47 Year
  Sex: Female
  Weight: 42 kg

DRUGS (9)
  1. ABILIFY [Suspect]
     Indication: POST-TRAUMATIC STRESS DISORDER
     Dosage: 1-2TABS;5MG-10MG DAILY 1 DF = 5MG TO 10MG
     Route: 048
     Dates: start: 20050106
  2. ABILIFY [Suspect]
     Indication: BIPOLAR DISORDER
     Dosage: 1-2TABS;5MG-10MG DAILY 1 DF = 5MG TO 10MG
     Route: 048
     Dates: start: 20050106
  3. ZYPREXA [Suspect]
     Dates: start: 20040601, end: 20050101
  4. KLONOPIN [Concomitant]
  5. VALIUM [Concomitant]
  6. PROVIGIL [Concomitant]
  7. LOMOTIL [Concomitant]
  8. PREMPRO [Concomitant]
  9. LEXAPRO [Concomitant]

REACTIONS (6)
  - DYSKINESIA [None]
  - MOUTH ULCERATION [None]
  - ORAL INFECTION [None]
  - PAIN [None]
  - SWOLLEN TONGUE [None]
  - TEMPOROMANDIBULAR JOINT SYNDROME [None]
